FAERS Safety Report 12739045 (Version 1)
Quarter: 2016Q3

REPORT INFORMATION
  Report Type: Spontaneous
  Country: IT (occurrence: IT)
  Receive Date: 20160913
  Receipt Date: 20160913
  Transmission Date: 20161109
  Serious: Yes (Hospitalization)
  Sender: FDA-Public Use
  Company Number: IT-PFIZER INC-2016425899

PATIENT
  Age: 4 Year
  Sex: Female

DRUGS (1)
  1. METHOTREXATE. [Suspect]
     Active Substance: METHOTREXATE
     Indication: ACUTE LYMPHOCYTIC LEUKAEMIA
     Dosage: 5 G X SQUARE METER BODY SURFACE, DAILY
     Route: 042

REACTIONS (1)
  - Hypercreatinaemia [Unknown]

NARRATIVE: CASE EVENT DATE: 20160907
